FAERS Safety Report 8210967-1 (Version None)
Quarter: 2012Q1

REPORT INFORMATION
  Report Type: 
  Country: None (occurrence: None)
  Receive Date: 20120315
  Receipt Date: 20120306
  Transmission Date: 20120608
  Serious: Yes (Hospitalization, Other)
  Sender: FDA-Public Use
  Company Number: US-JNJFOC-20120207724

PATIENT
  Sex: Male
  Weight: 113.4 kg

DRUGS (4)
  1. REMICADE [Suspect]
     Route: 042
     Dates: start: 20090101
  2. INSULIN [Suspect]
     Indication: PRODUCT USED FOR UNKNOWN INDICATION
     Route: 065
  3. REMICADE [Suspect]
     Indication: CROHN'S DISEASE
     Route: 042
     Dates: start: 20040901, end: 20090101
  4. METHOTREXATE [Suspect]
     Indication: PRODUCT USED FOR UNKNOWN INDICATION
     Route: 065

REACTIONS (31)
  - HEART RATE INCREASED [None]
  - AORTIC ANEURYSM [None]
  - GOUT [None]
  - URINARY HESITATION [None]
  - INTERVERTEBRAL DISC PROTRUSION [None]
  - DRUG INEFFECTIVE [None]
  - INSOMNIA [None]
  - NECK PAIN [None]
  - ARTHRALGIA [None]
  - PAIN [None]
  - POLLAKIURIA [None]
  - VITAMIN D DEFICIENCY [None]
  - ANXIETY [None]
  - DYSURIA [None]
  - CROHN'S DISEASE [None]
  - GASTRITIS [None]
  - PYREXIA [None]
  - OSTEOARTHRITIS [None]
  - BACTERIAL INFECTION [None]
  - BLOOD GLUCOSE INCREASED [None]
  - CONVULSION [None]
  - GASTROOESOPHAGEAL REFLUX DISEASE [None]
  - ABDOMINAL PAIN UPPER [None]
  - CHOLELITHIASIS [None]
  - PALPITATIONS [None]
  - ABDOMINAL PAIN [None]
  - GASTROENTERITIS [None]
  - DEPRESSION [None]
  - FAECES DISCOLOURED [None]
  - SELF-MEDICATION [None]
  - PANCREATIC DISORDER [None]
